FAERS Safety Report 23966588 (Version 1)
Quarter: 2024Q2

REPORT INFORMATION
  Report Type: Other
  Country: IR (occurrence: IR)
  Receive Date: 20240612
  Receipt Date: 20240612
  Transmission Date: 20240716
  Serious: Yes (Hospitalization)
  Sender: FDA-Public Use
  Company Number: IR-B.Braun Medical Inc.-2157033

PATIENT
  Age: 79 Year
  Sex: Male
  Weight: 60.2 kg

DRUGS (3)
  1. HEPARIN SODIUM IN DEXTROSE [Suspect]
     Active Substance: HEPARIN SODIUM
     Indication: Portal vein thrombosis
  2. ANTITHROMBIN III HUMAN [Suspect]
     Active Substance: ANTITHROMBIN III HUMAN
  3. MEROPENEM [Concomitant]
     Active Substance: MEROPENEM

REACTIONS (2)
  - Haematoma muscle [Unknown]
  - Drug ineffective [Unknown]
